FAERS Safety Report 6306674-2 (Version None)
Quarter: 2009Q3

REPORT INFORMATION
  Report Type: 
  Country: None (occurrence: None)
  Receive Date: 20090812
  Receipt Date: 20090803
  Transmission Date: 20100115
  Serious: Yes (Death, Hospitalization)
  Sender: FDA-Public Use
  Company Number: JP-ABBOTT-09P-087-0583037-00

PATIENT
  Sex: Male

DRUGS (3)
  1. KALETRA [Suspect]
     Indication: HIV INFECTION
     Route: 048
     Dates: start: 20080401, end: 20080430
  2. TRUVADA [Concomitant]
     Indication: HIV INFECTION
     Route: 048
     Dates: start: 20080401, end: 20080430
  3. FREEZE-DRIED HUMAN BLOOD-COAGULATION FACTOR IX [Concomitant]
     Indication: HAEMARTHROSIS
     Dates: start: 20080401, end: 20080430

REACTIONS (1)
  - CEREBRAL HAEMORRHAGE [None]
